FAERS Safety Report 5642408-2 (Version None)
Quarter: 2008Q1

REPORT INFORMATION
  Report Type: 
  Country: None (occurrence: None)
  Receive Date: 20080131
  Receipt Date: 20071203
  Transmission Date: 20080703
  Serious: No
  Sender: FDA-Public Use
  Company Number: US200712000608

PATIENT
  Age: 58 Year
  Sex: Male

DRUGS (7)
  1. BYETTA [Suspect]
     Indication: TYPE 2 DIABETES MELLITUS
     Dosage: 5 UG, 2/D, SUBCUTANEOUS; 10 UG, 2/D, SUBCUTANEOUS
     Route: 058
     Dates: start: 20070901, end: 20071101
  2. BYETTA [Suspect]
     Indication: TYPE 2 DIABETES MELLITUS
     Dosage: 5 UG, 2/D, SUBCUTANEOUS; 10 UG, 2/D, SUBCUTANEOUS
     Route: 058
     Dates: start: 20071101, end: 20071101
  3. BYETTA [Suspect]
     Indication: TYPE 2 DIABETES MELLITUS
     Dosage: 5 UG, 2/D, SUBCUTANEOUS; 10 UG, 2/D, SUBCUTANEOUS
     Route: 058
     Dates: start: 20071101
  4. EXENATIDE (EXENATIDE) [Concomitant]
  5. DRUG USED IN DIABETES [Concomitant]
  6. METFORMIN HCL [Concomitant]
  7. ALTACE [Concomitant]

REACTIONS (7)
  - FEELING COLD [None]
  - INCORRECT DOSE ADMINISTERED [None]
  - INFLUENZA [None]
  - LETHARGY [None]
  - NIGHT SWEATS [None]
  - ORAL HERPES [None]
  - RESPIRATORY TRACT CONGESTION [None]
